FAERS Safety Report 17113693 (Version 2)
Quarter: 2020Q1

REPORT INFORMATION
  Report Type: Spontaneous
  Country: JP (occurrence: JP)
  Receive Date: 20191205
  Receipt Date: 20200115
  Transmission Date: 20200409
  Serious: Yes (Death)
  Sender: FDA-Public Use
  Company Number: JP-ROCHE-2486894

PATIENT
  Age: 71 Year
  Sex: Female
  Weight: 51 kg

DRUGS (9)
  1. HERCEPTIN [Suspect]
     Active Substance: TRASTUZUMAB
     Indication: BREAST CANCER
     Route: 041
     Dates: start: 20190703, end: 20191016
  2. PERJETA [Suspect]
     Active Substance: PERTUZUMAB
     Indication: BREAST CANCER
     Dosage: STRENGTH: 420MG/14ML.
     Route: 041
     Dates: start: 20190703, end: 20191016
  3. LETROZOLE. [Suspect]
     Active Substance: LETROZOLE
     Indication: BREAST CANCER
     Route: 048
     Dates: start: 20160316, end: 20191104
  4. REBAMIPIDE [Concomitant]
     Active Substance: REBAMIPIDE
     Dosage: DOSAGE IS UNCERTAIN.
     Route: 065
     Dates: start: 20160316, end: 20191104
  5. DENOTAS [Concomitant]
     Active Substance: CALCIUM CARBONATE\CHOLECALCIFEROL\MAGNESIUM CARBONATE
     Dosage: 2T DOSE INTERVAL UNCERTAINTY
     Route: 048
     Dates: start: 20190613, end: 20191104
  6. CELECOX [Concomitant]
     Active Substance: CELECOXIB
     Dosage: DOSAGE IS UNCERTAIN.
     Route: 065
     Dates: start: 20160316, end: 20191104
  7. RANMARK [Concomitant]
     Active Substance: DENOSUMAB
     Dosage: DOSE INTERVAL UNCERTAINTY
     Route: 058
     Dates: start: 20190613, end: 20191023
  8. HALAVEN [Suspect]
     Active Substance: ERIBULIN MESYLATE
     Indication: BREAST CANCER
     Dosage: DOSE INTERVAL: DAY1 AND 8
     Route: 041
     Dates: start: 20190703, end: 20191023
  9. LYRICA [Concomitant]
     Active Substance: PREGABALIN
     Dosage: DOSE INTERVAL UNCERTAINTY
     Route: 048
     Dates: start: 20160316, end: 20191104

REACTIONS (1)
  - Interstitial lung disease [Fatal]

NARRATIVE: CASE EVENT DATE: 20191105
